FAERS Safety Report 9293045 (Version 1)
Quarter: 2013Q1

REPORT INFORMATION
  Report Type: Spontaneous
  Country: US (occurrence: None)
  Receive Date: 20121214
  Receipt Date: 20121214
  Transmission Date: 20140127
  Serious: Yes (Hospitalization)
  Sender: FDA-Public Use
  Company Number: 1203USA01753

PATIENT
  Age: 67 Year
  Sex: Male

DRUGS (5)
  1. JANUVIA [Suspect]
     Route: 048
  2. GLIPIZIDE (GLIPIZIDE) [Concomitant]
  3. MK-9378 (METFORMIN) [Concomitant]
  4. PRINIVIL (LISINOPRIL) [Concomitant]
  5. LIPITOR (ATORVASTATIN CALCIUM) [Concomitant]

REACTIONS (2)
  - Pancreatitis [None]
  - Abdominal pain [None]
